FAERS Safety Report 21927945 (Version 1)
Quarter: 2023Q1

REPORT INFORMATION
  Report Type: Other
  Country: US (occurrence: None)
  Receive Date: 20230130
  Receipt Date: 20230130
  Transmission Date: 20230417
  Serious: Yes (Death, Other)
  Sender: FDA-Public Use
  Company Number: US-ROCHE-3271427

PATIENT
  Age: 5 Year
  Sex: Male

DRUGS (10)
  1. MYCOPHENOLATE MOFETIL [Suspect]
     Active Substance: MYCOPHENOLATE MOFETIL
     Indication: Prophylaxis against graft versus host disease
     Route: 065
  2. TOCILIZUMAB [Suspect]
     Active Substance: TOCILIZUMAB
     Indication: Haemophagocytic lymphohistiocytosis
     Route: 065
  3. ALEMTUZUMAB [Suspect]
     Active Substance: ALEMTUZUMAB
     Indication: Prophylaxis against transplant rejection
     Dosage: DAYS -14 TO -10
     Route: 065
  4. FLUDARABINE [Suspect]
     Active Substance: FLUDARABINE PHOSPHATE
     Indication: Prophylaxis against transplant rejection
     Dosage: DAYS -8 TO -4
     Route: 065
  5. CYCLOPHOSPHAMIDE [Suspect]
     Active Substance: CYCLOPHOSPHAMIDE
     Indication: Prophylaxis against transplant rejection
     Dosage: DAY -3, 20 MG/KGX1
     Route: 065
  6. CYCLOSPORINE [Suspect]
     Active Substance: CYCLOSPORINE
     Indication: Prophylaxis against graft versus host disease
     Route: 065
  7. ABATACEPT [Suspect]
     Active Substance: ABATACEPT
     Indication: Prophylaxis against graft versus host disease
     Route: 065
  8. EMAPALUMAB [Concomitant]
     Active Substance: EMAPALUMAB
  9. DEXAMETHASONE [Concomitant]
     Active Substance: DEXAMETHASONE
  10. ECULIZUMAB [Concomitant]
     Active Substance: ECULIZUMAB

REACTIONS (6)
  - Septic shock [Fatal]
  - Multiple organ dysfunction syndrome [Unknown]
  - Pneumonia acinetobacter [Unknown]
  - Respiratory distress [Unknown]
  - Disease progression [Unknown]
  - Drug ineffective [Unknown]
